FAERS Safety Report 8555229-8 (Version None)
Quarter: 2012Q3

REPORT INFORMATION
  Report Type: 
  Country: None (occurrence: None)
  Receive Date: 20120731
  Receipt Date: 20120717
  Transmission Date: 20120928
  Serious: Yes (Other)
  Sender: FDA-Public Use
  Company Number: CHPA2012US016321

PATIENT
  Age: 72 Year
  Sex: Female

DRUGS (3)
  1. MAALOX ANTACID/ANTIGAS MS LIQ COOL MINT [Suspect]
     Indication: MUSCLE SPASMS
     Dosage: 3 TSP, ONCE OR TWICE A DAY, PRN
     Route: 048
  2. MAALOX ANTACID/ANTIGAS RS LIQ COOL MINT [Suspect]
     Dosage: 3 TSP, ONCE OR TWICE A DAY, PRN
     Route: 048
  3. LOTREL [Concomitant]
     Indication: HYPERTENSION
     Dosage: UNK, UNK

REACTIONS (4)
  - DIVERTICULITIS [None]
  - GASTRITIS [None]
  - THERAPEUTIC RESPONSE UNEXPECTED [None]
  - IRRITABLE BOWEL SYNDROME [None]
